FAERS Safety Report 10180908 (Version 1)
Quarter: 2014Q2

REPORT INFORMATION
  Report Type: Spontaneous
  Country: US (occurrence: US)
  Receive Date: 20140519
  Receipt Date: 20140519
  Transmission Date: 20141212
  Serious: No
  Sender: FDA-Public Use
  Company Number: US-AMGEN INC.-USASP2014008787

PATIENT
  Sex: Female

DRUGS (3)
  1. PROLIA [Suspect]
     Indication: OSTEOPOROSIS POSTMENOPAUSAL
     Dosage: UNK UNK, Q6MO
     Route: 065
     Dates: start: 20140121
  2. CALCIUM + VITAMIN D                /00944201/ [Concomitant]
  3. MULTIVITAMIN                       /00097801/ [Concomitant]

REACTIONS (2)
  - Mobility decreased [Unknown]
  - Back pain [Not Recovered/Not Resolved]
